FAERS Safety Report 4944633-2 (Version None)
Quarter: 2006Q1

REPORT INFORMATION
  Report Type: 
  Country: None (occurrence: None)
  Receive Date: 20060113
  Receipt Date: 20050106
  Transmission Date: 20060701
  Serious: Yes (Other)
  Sender: FDA-Public Use
  Company Number: HQWYE202716JUL04

PATIENT
  Sex: Female
  Weight: 113.5 kg

DRUGS (5)
  1. PREMPRO [Suspect]
     Dosage: ORAL
     Route: 048
     Dates: start: 20030101
  2. PREMARIN [Suspect]
     Dosage: ORAL
     Route: 048
     Dates: start: 20030101
  3. PROVERA [Suspect]
     Dosage: ORAL
     Route: 048
     Dates: end: 20030101
  4. MONOPRIL [Concomitant]
  5. LIPITOR [Concomitant]

REACTIONS (2)
  - DEEP VEIN THROMBOSIS [None]
  - PULMONARY EMBOLISM [None]
